FAERS Safety Report 8555394-2 (Version None)
Quarter: 2012Q3

REPORT INFORMATION
  Report Type: 
  Country: None (occurrence: None)
  Receive Date: 20120731
  Receipt Date: 20111128
  Transmission Date: 20120928
  Serious: Yes (Disabling, Other)
  Sender: FDA-Public Use
  Company Number: US-ASTRAZENECA-2011SE34091

PATIENT
  Age: 53 Year
  Sex: Male
  Weight: 158 kg

DRUGS (14)
  1. SEROQUEL [Suspect]
     Route: 048
  2. SEROQUEL [Suspect]
     Route: 048
  3. SEROQUEL [Suspect]
     Route: 048
  4. SEROQUEL [Suspect]
     Indication: INSOMNIA
     Route: 048
     Dates: start: 20100803
  5. SEROQUEL [Suspect]
     Route: 048
  6. DILANTIN [Concomitant]
     Route: 048
  7. PRESTIQUE [Concomitant]
     Indication: DEPRESSION
     Route: 048
     Dates: start: 20090220
  8. SEROQUEL [Suspect]
     Indication: ANXIETY
     Route: 048
     Dates: start: 20100803
  9. SEROQUEL [Suspect]
     Route: 048
  10. SEROQUEL [Suspect]
     Route: 048
  11. SEROQUEL [Suspect]
     Indication: PARANOIA
     Route: 048
     Dates: start: 20100803
  12. SEROQUEL [Suspect]
     Indication: DEPRESSION
     Route: 048
     Dates: start: 20100803
  13. SEROQUEL [Suspect]
     Route: 048
  14. SEROQUEL [Suspect]
     Route: 048

REACTIONS (11)
  - OVERDOSE [None]
  - BALANCE DISORDER [None]
  - LETHARGY [None]
  - ABNORMAL DREAMS [None]
  - INITIAL INSOMNIA [None]
  - CONVULSION [None]
  - CONFUSIONAL STATE [None]
  - SOMNOLENCE [None]
  - OFF LABEL USE [None]
  - EPILEPSY [None]
  - DRUG DOSE OMISSION [None]
